FAERS Safety Report 5812463-5 (Version None)
Quarter: 2008Q3

REPORT INFORMATION
  Report Type: 
  Country: None (occurrence: None)
  Receive Date: 20080715
  Receipt Date: 20080715
  Transmission Date: 20090109
  Serious: Yes (Hospitalization)
  Sender: FDA-Public Use
  Company Number: None

PATIENT
  Age: 77 Year
  Sex: Female

DRUGS (1)
  1. AVELOX [Suspect]
     Dosage: 400 MG DAILY IV
     Route: 042
     Dates: start: 20060930

REACTIONS (2)
  - THROAT TIGHTNESS [None]
  - URTICARIA [None]
